FAERS Safety Report 10206582 (Version 12)
Quarter: 2016Q3

REPORT INFORMATION
  Report Type: Spontaneous
  Country: US (occurrence: US)
  Receive Date: 20140530
  Receipt Date: 20160926
  Transmission Date: 20161109
  Serious: Yes (Hospitalization, Other)
  Sender: FDA-Public Use
  Company Number: US-GLAXOSMITHKLINE-A1045256A

PATIENT
  Age: 37 Year
  Sex: Female

DRUGS (13)
  1. FLOLAN [Suspect]
     Active Substance: EPOPROSTENOL SODIUM
     Dosage: 116 NG/KG/MIN, CO
     Dates: start: 20111021
  2. FLOLAN [Suspect]
     Active Substance: EPOPROSTENOL SODIUM
     Dosage: 118 NG/KG/MIN, CO
     Dates: start: 20111021
  3. FLOLAN [Suspect]
     Active Substance: EPOPROSTENOL SODIUM
     Dosage: 118 NG/KG/MIN, CONTINUOUSLY
     Dates: start: 20111021
  4. COUMADIN [Concomitant]
     Active Substance: WARFARIN SODIUM
  5. FLOLAN [Suspect]
     Active Substance: EPOPROSTENOL SODIUM
     Dosage: 118 NG/KG/MIN
  6. FLOLAN [Suspect]
     Active Substance: EPOPROSTENOL SODIUM
     Dosage: UNK, CO
  7. TRACLEER [Concomitant]
     Active Substance: BOSENTAN
  8. REVATIO [Concomitant]
     Active Substance: SILDENAFIL CITRATE
  9. FLOLAN [Suspect]
     Active Substance: EPOPROSTENOL SODIUM
     Indication: PULMONARY ARTERIAL HYPERTENSION
  10. FLOLAN [Suspect]
     Active Substance: EPOPROSTENOL SODIUM
     Dosage: 118NG/KG/MIN
  11. FLOLAN [Suspect]
     Active Substance: EPOPROSTENOL SODIUM
     Dosage: 116 NG/KG/MIN, CO
     Route: 042
  12. FLOLAN [Suspect]
     Active Substance: EPOPROSTENOL SODIUM
     Indication: PULMONARY ARTERIAL HYPERTENSION
     Dosage: CONCENTRATION 120,000 NG/ML, PUMP RATE 83 ML/DAY, VIAL STRENGTH 1.5 MG
     Route: 042
     Dates: start: 20090410
  13. FLOLAN [Suspect]
     Active Substance: EPOPROSTENOL SODIUM
     Dosage: 118 NG/KG/MIN, CONTINUOUSLY
     Dates: start: 20111021

REACTIONS (19)
  - Volume blood decreased [Unknown]
  - Vascular injury [Recovered/Resolved]
  - Device leakage [Unknown]
  - Dyspnoea [Unknown]
  - Hospitalisation [Unknown]
  - Haematemesis [Unknown]
  - Cough [Unknown]
  - Vomiting [Unknown]
  - Ill-defined disorder [Unknown]
  - Diarrhoea [Unknown]
  - Pallor [Unknown]
  - Device infusion issue [Unknown]
  - Emergency care [Unknown]
  - Malaise [Unknown]
  - Haemoptysis [Unknown]
  - Nausea [Unknown]
  - Device related infection [Unknown]
  - Thrombosis [Unknown]
  - Device alarm issue [Unknown]

NARRATIVE: CASE EVENT DATE: 20141109
